FAERS Safety Report 12427696 (Version 4)
Quarter: 2017Q1

REPORT INFORMATION
  Report Type: Report from Study
  Country: US (occurrence: US)
  Receive Date: 20160602
  Receipt Date: 20170110
  Transmission Date: 20170428
  Serious: Yes (Other)
  Sender: FDA-Public Use
  Company Number: PHEH2016US013273

PATIENT
  Age: 34 Year
  Sex: Female

DRUGS (2)
  1. GILENYA [Suspect]
     Active Substance: FINGOLIMOD HYDROCHLORIDE
     Dosage: UNK
     Route: 065
     Dates: start: 20160524
  2. GILENYA [Suspect]
     Active Substance: FINGOLIMOD HYDROCHLORIDE
     Indication: RELAPSING-REMITTING MULTIPLE SCLEROSIS
     Dosage: UNK
     Route: 065
     Dates: start: 20110201, end: 20160201

REACTIONS (8)
  - Hypoaesthesia [Unknown]
  - Multiple sclerosis relapse [Unknown]
  - Headache [Recovered/Resolved]
  - Cough [Unknown]
  - Headache [Not Recovered/Not Resolved]
  - Migraine [Unknown]
  - Lhermitte^s sign [Unknown]
  - Fatigue [Unknown]

NARRATIVE: CASE EVENT DATE: 20120201
